FAERS Safety Report 4897992-3 (Version None)
Quarter: 2006Q1

REPORT INFORMATION
  Report Type: 
  Country: None (occurrence: None)
  Receive Date: 20060201
  Receipt Date: 20060117
  Transmission Date: 20060701
  Serious: Yes (Other)
  Sender: FDA-Public Use
  Company Number: FR-AVENTIS-200610219FR

PATIENT
  Age: 51 Year
  Sex: Female
  Weight: 90 kg

DRUGS (18)
  1. KETEK [Suspect]
     Indication: BRONCHITIS
     Route: 048
     Dates: start: 20051205, end: 20051214
  2. COZAAR [Concomitant]
     Indication: HYPERTENSION
     Route: 048
  3. LEVOTHYROX [Concomitant]
     Route: 048
  4. CELESTENE [Concomitant]
     Indication: BRONCHITIS
     Route: 055
     Dates: start: 20051205, end: 20051217
  5. CELESTENE [Concomitant]
     Route: 048
     Dates: start: 20051017, end: 20051022
  6. GENTAMYCIN SULFATE [Concomitant]
     Indication: BRONCHITIS
     Route: 055
     Dates: start: 20051205, end: 20051217
  7. SURBRONC [Concomitant]
     Indication: BRONCHITIS
     Route: 048
     Dates: start: 20051205, end: 20051217
  8. SURBRONC [Concomitant]
     Route: 048
     Dates: start: 20051121, end: 20051130
  9. DOLIPRANE [Concomitant]
     Indication: PYREXIA
     Route: 048
  10. SERETIDE [Concomitant]
     Indication: BRONCHITIS
     Route: 055
     Dates: start: 20051026, end: 20060101
  11. CETIRIZINE HCL [Concomitant]
     Route: 048
     Dates: start: 20050901, end: 20060101
  12. BRONCHODUAL [Concomitant]
     Indication: BRONCHITIS
     Route: 055
     Dates: start: 20051213, end: 20060101
  13. PREDNISOLONE [Concomitant]
     Dates: start: 20050914, end: 20050918
  14. TAKETIAM [Concomitant]
     Indication: BRONCHITIS
     Route: 048
     Dates: start: 20050914, end: 20050918
  15. JOSACINE [Concomitant]
     Indication: PERTUSSIS
     Route: 048
     Dates: start: 20051001, end: 20051014
  16. KETOPROFEN [Concomitant]
     Indication: BACK PAIN
     Route: 048
     Dates: start: 20051020, end: 20051024
  17. PRIMALAN [Concomitant]
     Route: 048
     Dates: start: 20051007, end: 20051016
  18. OMEPRAZOLE [Concomitant]
     Route: 048
     Dates: start: 20051017, end: 20051113

REACTIONS (3)
  - CYTOLYTIC HEPATITIS [None]
  - DYSGEUSIA [None]
  - NAUSEA [None]
